FAERS Safety Report 6423427-5 (Version None)
Quarter: 2009Q4

REPORT INFORMATION
  Report Type: 
  Country: None (occurrence: None)
  Receive Date: 20091102
  Receipt Date: 20091027
  Transmission Date: 20100525
  Serious: Yes (Death, Hospitalization)
  Sender: FDA-Public Use
  Company Number: A0814246A

PATIENT
  Age: 51 Year
  Sex: Female

DRUGS (1)
  1. AVANDIA [Suspect]
     Dosage: 10NG PER DAY
     Route: 065
     Dates: end: 20070926

REACTIONS (6)
  - BRAIN NEOPLASM MALIGNANT [None]
  - BREAST CANCER [None]
  - CEREBROVASCULAR ACCIDENT [None]
  - HEPATIC NEOPLASM MALIGNANT [None]
  - METASTATIC NEOPLASM [None]
  - NEOPLASM MALIGNANT [None]
